FAERS Safety Report 21762641 (Version 8)
Quarter: 2023Q1

REPORT INFORMATION
  Report Type: Report from Study
  Country: PL (occurrence: PL)
  Receive Date: 20221221
  Receipt Date: 20230303
  Transmission Date: 20230418
  Serious: Yes (Death, Hospitalization, Other)
  Sender: FDA-Public Use
  Company Number: PL-CELLTRION HEALTHCARE HUNGARY KFT-2022PL020546

PATIENT
  Age: 57 Year
  Sex: Male
  Weight: 83 kg

DRUGS (25)
  1. RITUXIMAB [Suspect]
     Active Substance: RITUXIMAB
     Indication: Chronic lymphocytic leukaemia
     Dosage: 1100 MG, CYCLICAL (EVERY 28 DAYS) ON THE FIRST DAY OF EACH SUBSEQUENT CYCLE
     Route: 042
     Dates: start: 20220729, end: 20221025
  2. RITUXIMAB [Suspect]
     Active Substance: RITUXIMAB
     Dosage: 1100 MG, CYCLIC (FREQ: 28 DAYS; DATE OF MOST RECENT DOSE ADMINISTERED PRIOR TO EVENT ONSET WAS 26OCT
     Route: 042
     Dates: start: 20220728, end: 20221025
  3. RITUXIMAB [Suspect]
     Active Substance: RITUXIMAB
     Dosage: 500 MG/M2, CYCLIC; CONCENTRATE FOR SOLUTION FOR INFUSION
     Route: 065
     Dates: start: 20221026, end: 20221026
  4. RITUXIMAB [Suspect]
     Active Substance: RITUXIMAB
     Dosage: 375 MG/M2, CYCLIC; CONCENTRATE FOR SOLUTION FOR INFUSION
     Route: 065
     Dates: start: 20220728, end: 20221026
  5. RITUXIMAB [Suspect]
     Active Substance: RITUXIMAB
     Dosage: 818 MG, SINGLE
     Dates: start: 20220729
  6. RITUXIMAB [Suspect]
     Active Substance: RITUXIMAB
     Dosage: UNK
  7. BENDAMUSTINE [Suspect]
     Active Substance: BENDAMUSTINE
     Indication: Chronic lymphocytic leukaemia
     Dosage: 155 MG, CYCLICAL (EVERY 28 DAYS)
     Route: 042
     Dates: start: 20220729, end: 20221026
  8. BENDAMUSTINE [Suspect]
     Active Substance: BENDAMUSTINE
     Dosage: 155 MG, CYCLIC (FREQ:28 D;CYCLICAL), CYCLICAL, DATE OF MOST RECENT DOSE ADMINISTERED PRIOR TO EVENT
     Route: 042
     Dates: start: 20220728, end: 20221026
  9. BENDAMUSTINE [Suspect]
     Active Substance: BENDAMUSTINE
     Dosage: 70 MG/M2
     Route: 065
     Dates: start: 20220728, end: 20221026
  10. BENDAMUSTINE [Suspect]
     Active Substance: BENDAMUSTINE
     Dosage: UNK
     Route: 065
     Dates: start: 20221026
  11. BENDAMUSTINE [Suspect]
     Active Substance: BENDAMUSTINE
     Dosage: UNK
  12. PIRTOBRUTINIB [Suspect]
     Active Substance: PIRTOBRUTINIB
     Indication: Chronic lymphocytic leukaemia
     Dosage: 200 MILLIGRAM, QD, DATE OF MOST RECENT DOSE ADMINISTERED PRIOR TO EVENT ONSET WAS19/DEC/2022
     Route: 065
     Dates: start: 20221122
  13. PIRTOBRUTINIB [Suspect]
     Active Substance: PIRTOBRUTINIB
     Dosage: UNK
     Route: 065
     Dates: start: 20221219
  14. ALLOPURINOL [Concomitant]
     Active Substance: ALLOPURINOL
     Indication: Prophylaxis
     Dosage: UNK
     Route: 065
     Dates: start: 20221123
  15. ALLOPURINOL [Concomitant]
     Active Substance: ALLOPURINOL
     Indication: Hyperuricaemia
  16. GLUCOPHAGE [Concomitant]
     Active Substance: METFORMIN HYDROCHLORIDE
     Indication: Product used for unknown indication
     Dosage: UNK
     Route: 065
     Dates: start: 2018
  17. BISEPTOL [Concomitant]
     Active Substance: SULFAMETHOXAZOLE\TRIMETHOPRIM
     Indication: Product used for unknown indication
     Dosage: UNK
     Route: 065
     Dates: start: 2018
  18. GLIPIZIDE [Concomitant]
     Active Substance: GLIPIZIDE
     Indication: Product used for unknown indication
     Dosage: UNK
     Route: 065
     Dates: start: 2020
  19. ACYCLOVIR [Concomitant]
     Active Substance: ACYCLOVIR
     Indication: Product used for unknown indication
     Dosage: UNK
     Route: 065
     Dates: start: 2018
  20. MESALAMINE [Concomitant]
     Active Substance: MESALAMINE
     Indication: Product used for unknown indication
     Dosage: UNK
     Route: 065
     Dates: start: 2017
  21. CILOZEK [Concomitant]
     Indication: Product used for unknown indication
     Dosage: UNK
     Route: 065
  22. MOLNUPIRAVIR [Concomitant]
     Active Substance: MOLNUPIRAVIR
     Indication: Product used for unknown indication
     Dosage: UNK
     Route: 065
     Dates: start: 20221104
  23. FOSFOMYCIN [Concomitant]
     Active Substance: FOSFOMYCIN
     Indication: Product used for unknown indication
     Dosage: UNK
     Route: 065
     Dates: start: 20021105
  24. METFORMIN [Concomitant]
     Active Substance: METFORMIN HYDROCHLORIDE
     Dosage: UNK
     Route: 065
     Dates: start: 20160229
  25. GLYBURIDE [Concomitant]
     Active Substance: GLYBURIDE
     Indication: Diabetes mellitus

REACTIONS (9)
  - Escherichia urinary tract infection [Fatal]
  - Pneumonia [Fatal]
  - Anaemia [Recovered/Resolved]
  - Chronic lymphocytic leukaemia [Not Recovered/Not Resolved]
  - Cardiac arrest [Not Recovered/Not Resolved]
  - Multiple organ dysfunction syndrome [Not Recovered/Not Resolved]
  - COVID-19 [Not Recovered/Not Resolved]
  - Disease progression [Unknown]
  - Neoplasm progression [Unknown]

NARRATIVE: CASE EVENT DATE: 20221101
